FAERS Safety Report 4448412-4 (Version None)
Quarter: 2004Q3

REPORT INFORMATION
  Report Type: 
  Country: None (occurrence: None)
  Receive Date: 20040730
  Receipt Date: 20040503
  Transmission Date: 20050211
  Serious: Yes (Other)
  Sender: FDA-Public Use
  Company Number: 2004-05-0149

PATIENT
  Age: 62 Year
  Sex: Male
  Weight: 77 kg

DRUGS (6)
  1. INTRON A [Suspect]
     Indication: MALIGNANT MELANOMA
     Dosage: 20 MIU/M^2
     Dates: start: 20030124, end: 20030227
  2. INTRON A [Suspect]
     Indication: MALIGNANT MELANOMA
     Dosage: 20 MIU/M^2
     Dates: end: 20040113
  3. PAXIL [Suspect]
     Indication: DEPRESSION
     Dosage: 20 MG QD ORAL
     Route: 048
     Dates: start: 20030101, end: 20040401
  4. ZOCOR [Concomitant]
  5. NORVASC [Concomitant]
  6. CELEBREX [Concomitant]

REACTIONS (4)
  - DEPRESSION [None]
  - HYPOTHYROIDISM [None]
  - INSOMNIA [None]
  - NIGHTMARE [None]
